FAERS Safety Report 8391931-9 (Version None)
Quarter: 2012Q2

REPORT INFORMATION
  Report Type: 
  Country: None (occurrence: None)
  Receive Date: 20120529
  Receipt Date: 20120515
  Transmission Date: 20120825
  Serious: Yes (Other)
  Sender: FDA-Public Use
  Company Number: FR-VIIV HEALTHCARE LIMITED-B0802358A

PATIENT
  Age: 39 Year
  Sex: Male

DRUGS (2)
  1. ABACAVIR SULFATE/LAMIVUDINE [Suspect]
     Indication: HIV INFECTION
     Route: 065
  2. VIRAMUNE [Concomitant]
     Indication: HIV INFECTION
     Route: 065

REACTIONS (4)
  - HEADACHE [None]
  - SKIN WARM [None]
  - RASH MACULO-PAPULAR [None]
  - GINGIVITIS [None]
